FAERS Safety Report 26112270 (Version 1)
Quarter: 2025Q4

REPORT INFORMATION
  Report Type: Spontaneous
  Country: US (occurrence: None)
  Receive Date: 20251202
  Receipt Date: 20251202
  Transmission Date: 20260117
  Serious: Yes (Death)
  Sender: FDA-CTU
  Company Number: None

PATIENT
  Age: 64 Year
  Sex: Female
  Weight: 77.1 kg

DRUGS (7)
  1. BOTOX [Suspect]
     Active Substance: ONABOTULINUMTOXINA
     Indication: Migraine
     Dosage: 200INTERNATIONAL UNIT(S)  -IU EVERY 3 MONTHS INTRAMUSCULAR
     Route: 030
     Dates: start: 20220712, end: 20251024
  2. ALLEGRA ALLERGY 180MG TABS(OTC)70 [Concomitant]
  3. ATORVASTATIN 80MG TABLETS [Concomitant]
  4. TROKENDI XR 50MG CAPSULES [Concomitant]
  5. VENLAFAXINE ER 225MG TABLETS [Concomitant]
  6. MAGNESIUM S00MG CAPSULES [Concomitant]
  7. VITAMIN D3 2,000IU TABLETS [Concomitant]

REACTIONS (1)
  - Death [None]

NARRATIVE: CASE EVENT DATE: 20251024
